FAERS Safety Report 9361108 (Version 1)
Quarter: 2013Q2

REPORT INFORMATION
  Report Type: Spontaneous
  Country: IT (occurrence: IT)
  Receive Date: 20130621
  Receipt Date: 20130621
  Transmission Date: 20140414
  Serious: Yes (Hospitalization)
  Sender: FDA-Public Use
  Company Number: IT-BAYER-2013-074238

PATIENT
  Sex: Male

DRUGS (2)
  1. ACETYLSALICYLIC ACID({=100 MG) [Suspect]
     Indication: ANTIPLATELET THERAPY
  2. CLOPIDOGREL [Suspect]
     Indication: ANTIPLATELET THERAPY

REACTIONS (3)
  - Extradural haematoma [Recovered/Resolved]
  - Quadriparesis [Recovering/Resolving]
  - Extradural haematoma [Recovering/Resolving]
